FAERS Safety Report 7539194-8 (Version None)
Quarter: 2011Q2

REPORT INFORMATION
  Report Type: 
  Country: None (occurrence: None)
  Receive Date: 20110610
  Receipt Date: 20110602
  Transmission Date: 20111010
  Serious: Yes (Hospitalization, Other)
  Sender: FDA-Public Use
  Company Number: US-JNJFOC-20110602342

PATIENT
  Sex: Female
  Weight: 47.17 kg

DRUGS (7)
  1. FENTANYL-100 [Suspect]
     Indication: RENAL DISORDER
     Dosage: NDC 0781-7241-55
     Route: 062
     Dates: start: 20100101
  2. FENTANYL-100 [Suspect]
     Dosage: NDC 0781-7241-55
     Route: 062
     Dates: start: 20110401, end: 20110501
  3. FENTANYL CITRATE [Suspect]
     Indication: RENAL DISORDER
     Dosage: NDC 0378
     Route: 062
     Dates: start: 20110501
  4. FENTANYL-100 [Suspect]
     Dosage: NDC 0781-7241-55
     Route: 062
     Dates: start: 20110401, end: 20110501
  5. FENTANYL-100 [Suspect]
     Indication: FIBROMYALGIA
     Dosage: NDC 0781-7241-55
     Route: 062
     Dates: start: 20100101
  6. UNKNOWN MEDICATION [Concomitant]
     Indication: PAIN
     Route: 065
  7. FENTANYL CITRATE [Suspect]
     Indication: FIBROMYALGIA
     Dosage: NDC 0378
     Route: 062
     Dates: start: 20110501

REACTIONS (3)
  - NEPHROLITHIASIS [None]
  - WITHDRAWAL SYNDROME [None]
  - INCORRECT DRUG ADMINISTRATION DURATION [None]
